FAERS Safety Report 12240283 (Version 1)
Quarter: 2016Q2

REPORT INFORMATION
  Report Type: Spontaneous
  Country: RO (occurrence: RO)
  Receive Date: 20160405
  Receipt Date: 20160405
  Transmission Date: 20160815
  Serious: Yes (Life-Threatening, Hospitalization)
  Sender: FDA-Public Use
  Company Number: PHHY2015RO174602

PATIENT
  Age: 40 Year
  Sex: Female

DRUGS (1)
  1. OSPAMOX [Suspect]
     Active Substance: AMOXICILLIN
     Indication: RESPIRATORY TRACT INFECTION
     Route: 048
     Dates: start: 20140306, end: 20140306

REACTIONS (4)
  - Oedema peripheral [Recovered/Resolved]
  - Anaphylactic shock [Recovered/Resolved]
  - Malaise [Recovered/Resolved]
  - Circumoral oedema [Recovered/Resolved]

NARRATIVE: CASE EVENT DATE: 20140306
